FAERS Safety Report 20320717 (Version 1)
Quarter: 2022Q1

REPORT INFORMATION
  Report Type: Spontaneous
  Country: US (occurrence: US)
  Receive Date: 20220111
  Receipt Date: 20220111
  Transmission Date: 20220424
  Serious: Yes (Other)
  Sender: FDA-Public Use
  Company Number: US-BIOVITRUM-2022US00070

PATIENT
  Sex: Female

DRUGS (1)
  1. KINERET [Suspect]
     Active Substance: ANAKINRA
     Indication: Still^s disease
     Route: 058
     Dates: start: 202003

REACTIONS (10)
  - Cellulitis [Unknown]
  - Anaemia [Unknown]
  - Petechiae [Unknown]
  - Contusion [Unknown]
  - Lymphocyte count decreased [Unknown]
  - Monocyte count abnormal [Unknown]
  - Musculoskeletal stiffness [Unknown]
  - Myalgia [Unknown]
  - Rash [Unknown]
  - Off label use [Unknown]
